FAERS Safety Report 6130276-4 (Version None)
Quarter: 2009Q1

REPORT INFORMATION
  Report Type: 
  Country: None (occurrence: None)
  Receive Date: 20090324
  Receipt Date: 20090324
  Transmission Date: 20090719
  Serious: Yes (Hospitalization)
  Sender: FDA-Public Use
  Company Number: PHHO2005GB05084

PATIENT
  Sex: Female
  Weight: 75 kg

DRUGS (1)
  1. TAMOXIFEN CITRATE [Suspect]
     Indication: BREAST CANCER
     Dosage: 20 MG, QD
     Route: 048
     Dates: start: 20020910

REACTIONS (6)
  - CATARACT [None]
  - CATARACT OPERATION [None]
  - EYE OPERATION [None]
  - MACULAR HOLE [None]
  - VISION BLURRED [None]
  - VISUAL ACUITY REDUCED [None]
